FAERS Safety Report 13507095 (Version 1)
Quarter: 2017Q2

REPORT INFORMATION
  Report Type: Spontaneous
  Country: US (occurrence: US)
  Receive Date: 20170502
  Receipt Date: 20170502
  Transmission Date: 20170830
  Serious: Yes (Disabling)
  Sender: FDA-Public Use
  Company Number: None

PATIENT
  Age: 80 Year
  Weight: 85.5 kg

DRUGS (12)
  1. AVODART [Suspect]
     Active Substance: DUTASTERIDE
     Indication: BENIGN PROSTATIC HYPERPLASIA
     Dosage: ?          QUANTITY:60 CAPSULE(S);?
     Route: 048
     Dates: start: 20160101, end: 20170501
  2. ASPIRIN. [Concomitant]
     Active Substance: ASPIRIN
  3. POTASSIUM [Concomitant]
     Active Substance: POTASSIUM
  4. FOLIC ACID. [Concomitant]
     Active Substance: FOLIC ACID
  5. NORVASC [Concomitant]
     Active Substance: AMLODIPINE BESYLATE
  6. AVODART [Concomitant]
     Active Substance: DUTASTERIDE
  7. MAGNESIUM [Concomitant]
     Active Substance: MAGNESIUM
  8. VITAMIN B12 [Concomitant]
     Active Substance: CYANOCOBALAMIN
  9. COZAAR [Concomitant]
     Active Substance: LOSARTAN POTASSIUM
  10. VITAMIN D3 [Concomitant]
     Active Substance: CHOLECALCIFEROL
  11. ZOCOR [Concomitant]
     Active Substance: SIMVASTATIN
  12. CIALIS [Concomitant]
     Active Substance: TADALAFIL

REACTIONS (5)
  - Lymphadenopathy [None]
  - Breast swelling [None]
  - Lymph node pain [None]
  - Breast pain [None]
  - Testicular pain [None]

NARRATIVE: CASE EVENT DATE: 20170416
